FAERS Safety Report 19481874 (Version 1)
Quarter: 2021Q3

REPORT INFORMATION
  Report Type: Spontaneous
  Country: IN (occurrence: IN)
  Receive Date: 20210701
  Receipt Date: 20210701
  Transmission Date: 20211014
  Serious: Yes (Death, Life-Threatening, Hospitalization, Other)
  Sender: FDA-Public Use
  Company Number: IN-ACCORD-228461

PATIENT
  Age: 74 Year
  Sex: Male

DRUGS (1)
  1. METHOTREXATE. [Suspect]
     Active Substance: METHOTREXATE

REACTIONS (12)
  - Transaminases increased [Recovering/Resolving]
  - Acute kidney injury [Recovering/Resolving]
  - Decreased appetite [Unknown]
  - Mouth ulceration [Unknown]
  - Septic shock [Fatal]
  - Skin toxicity [Unknown]
  - Pancytopenia [Recovering/Resolving]
  - Product dispensing error [Unknown]
  - Epidermal necrosis [Unknown]
  - Accidental overdose [Unknown]
  - Pneumonia [Fatal]
  - Tachycardia [Unknown]
